FAERS Safety Report 9012073 (Version 1)
Quarter: 2013Q1

REPORT INFORMATION
  Report Type: Spontaneous
  Country: IT (occurrence: IT)
  Receive Date: 20130114
  Receipt Date: 20130114
  Transmission Date: 20140127
  Serious: Yes (Other)
  Sender: FDA-Public Use
  Company Number: IT-ROCHE-1177701

PATIENT
  Age: 55 Year
  Sex: Female

DRUGS (2)
  1. ROFERON-A [Suspect]
     Indication: CHRONIC HEPATITIS C
     Dosage: 3X10E6
     Route: 058
  2. ROFERON-A [Suspect]
     Dosage: 3X10E6
     Route: 058

REACTIONS (4)
  - Anaemia [Unknown]
  - Fatigue [Unknown]
  - Hypotension [Unknown]
  - Syncope [Unknown]
